FAERS Safety Report 14884705 (Version 2)
Quarter: 2018Q2

REPORT INFORMATION
  Report Type: Spontaneous
  Country: US (occurrence: US)
  Receive Date: 20180511
  Receipt Date: 20180524
  Transmission Date: 20180711
  Serious: Yes (Other)
  Sender: FDA-Public Use
  Company Number: US-AKORN PHARMACEUTICALS-2018AKN00616

PATIENT
  Age: 19 Year
  Sex: Female

DRUGS (2)
  1. MYORISAN [Suspect]
     Active Substance: ISOTRETINOIN
     Indication: ACNE
     Dosage: 40 MG, 2X/DAY
     Dates: start: 20171219
  2. MYORISAN [Suspect]
     Active Substance: ISOTRETINOIN
     Indication: POST INFLAMMATORY PIGMENTATION CHANGE

REACTIONS (6)
  - Off label use [Not Recovered/Not Resolved]
  - Mood swings [Recovered/Resolved]
  - Epistaxis [Unknown]
  - Blood cholesterol increased [Unknown]
  - Unevaluable event [Recovered/Resolved]
  - Mood altered [Unknown]

NARRATIVE: CASE EVENT DATE: 20171219
